FAERS Safety Report 8062155-X (Version None)
Quarter: 2012Q1

REPORT INFORMATION
  Report Type: 
  Country: None (occurrence: None)
  Receive Date: 20120120
  Receipt Date: 20120120
  Transmission Date: 20120608
  Serious: Yes (Other)
  Sender: FDA-Public Use
  Company Number: None

PATIENT
  Sex: Female

DRUGS (1)
  1. XOLAIR [Suspect]
     Dosage: 300MG Q2W SQ
     Route: 058
     Dates: start: 20100505, end: 20111201

REACTIONS (4)
  - WHEEZING [None]
  - DYSPNOEA [None]
  - RASH [None]
  - URTICARIA [None]
